FAERS Safety Report 6075067-8 (Version None)
Quarter: 2009Q1

REPORT INFORMATION
  Report Type: 
  Country: None (occurrence: None)
  Receive Date: 20090212
  Receipt Date: 20090210
  Transmission Date: 20090719
  Serious: Yes (Disabling)
  Sender: FDA-Public Use
  Company Number: DE-JNJFOC-20090202500

PATIENT
  Age: 77 Year
  Sex: Male

DRUGS (1)
  1. TAVANIC [Suspect]
     Indication: URINARY TRACT INFECTION
     Route: 048

REACTIONS (2)
  - TENDONITIS [None]
  - TENOSYNOVITIS [None]
